FAERS Safety Report 12719250 (Version 1)
Quarter: 2016Q3

REPORT INFORMATION
  Report Type: Report from Study
  Country: US (occurrence: US)
  Receive Date: 20160907
  Receipt Date: 20160907
  Transmission Date: 20161109
  Serious: Yes (Hospitalization)
  Sender: FDA-Public Use
  Company Number: US-ASTRAZENECA-2016SE35201

PATIENT
  Age: 50 Year
  Sex: Female
  Weight: 106.1 kg

DRUGS (18)
  1. SYMBICORT [Suspect]
     Active Substance: BUDESONIDE\FORMOTEROL FUMARATE DIHYDRATE
     Indication: BRONCHITIS CHRONIC
     Dosage: UNKNOWN
     Route: 055
     Dates: start: 20160208
  2. SYMBICORT [Suspect]
     Active Substance: BUDESONIDE\FORMOTEROL FUMARATE DIHYDRATE
     Indication: CHRONIC OBSTRUCTIVE PULMONARY DISEASE
     Dosage: 160/4.5 MCG. 2 PUFFS 2 TIMES DAILY
     Route: 055
     Dates: start: 20160209
  3. OXYGEN. [Concomitant]
     Active Substance: OXYGEN
     Indication: HYPOXIA
     Dosage: 4 L COUNT
     Route: 055
     Dates: start: 20160209
  4. SYMBICORT [Suspect]
     Active Substance: BUDESONIDE\FORMOTEROL FUMARATE DIHYDRATE
     Indication: ASTHMA
     Dosage: UNKNOWN
     Route: 055
     Dates: start: 20160208
  5. LOSARTIN HYDRCHLOROTHIAZIDE [Suspect]
     Active Substance: HYDROCHLOROTHIAZIDE\LOSARTAN POTASSIUM
     Indication: HYPERTENSION
     Route: 048
     Dates: start: 2010
  6. ALBUTEROL NEBULIZER SOLUTION [Concomitant]
     Active Substance: ALBUTEROL
     Indication: HYPOXIA
     Dosage: DAILY
     Route: 055
     Dates: start: 20160209
  7. HYDROXYZINE [Concomitant]
     Active Substance: HYDROXYZINE\HYDROXYZINE HYDROCHLORIDE
     Indication: ANTIALLERGIC THERAPY
     Dosage: 50.0MG AS REQUIRED
     Route: 048
     Dates: start: 2013
  8. SYMBICORT [Suspect]
     Active Substance: BUDESONIDE\FORMOTEROL FUMARATE DIHYDRATE
     Indication: CHRONIC OBSTRUCTIVE PULMONARY DISEASE
     Dosage: UNKNOWN
     Route: 055
     Dates: start: 20160208
  9. SYMBICORT [Suspect]
     Active Substance: BUDESONIDE\FORMOTEROL FUMARATE DIHYDRATE
     Indication: BRONCHITIS CHRONIC
     Dosage: 160/4.5 MCG. 2 PUFFS 2 TIMES DAILY
     Route: 055
     Dates: start: 20160209
  10. METFORMIN [Suspect]
     Active Substance: METFORMIN HYDROCHLORIDE
     Indication: TYPE 2 DIABETES MELLITUS
     Dosage: 500 MG TWO TIMES A DAY, NON AZ PRODUCT
     Route: 048
     Dates: start: 201602
  11. AMYTRYPTALINE [Concomitant]
     Indication: MIGRAINE
     Route: 048
     Dates: start: 2013
  12. PROZAC [Concomitant]
     Active Substance: FLUOXETINE HYDROCHLORIDE
     Indication: DEPRESSION
     Route: 048
     Dates: start: 1996
  13. PROAIR RESCUE INHALER [Concomitant]
     Indication: MULTIPLE ALLERGIES
     Dosage: AS REQUIRED
     Route: 055
     Dates: start: 2010
  14. SYMBICORT [Suspect]
     Active Substance: BUDESONIDE\FORMOTEROL FUMARATE DIHYDRATE
     Indication: ASTHMA
     Dosage: 160/4.5 MCG. 2 PUFFS 2 TIMES DAILY
     Route: 055
     Dates: start: 20160209
  15. PANTOPRAZOLE [Concomitant]
     Active Substance: PANTOPRAZOLE SODIUM
     Indication: GASTROOESOPHAGEAL REFLUX DISEASE
     Dosage: 40.0MG AS REQUIRED
     Route: 048
     Dates: start: 2006
  16. DILTIAZEM ER [Concomitant]
     Active Substance: DILTIAZEM
     Indication: MIGRAINE
     Route: 048
     Dates: start: 201602
  17. HYDROXYZINE [Concomitant]
     Active Substance: HYDROXYZINE\HYDROXYZINE HYDROCHLORIDE
     Indication: ANXIETY
     Dosage: 50.0MG AS REQUIRED
     Route: 048
     Dates: start: 2013
  18. AMYTRYPTALINE [Concomitant]
     Indication: INSOMNIA
     Route: 048
     Dates: start: 2013

REACTIONS (13)
  - Insomnia [Unknown]
  - Hypoxia [Recovering/Resolving]
  - Atelectasis [Recovering/Resolving]
  - Pulmonary mass [Unknown]
  - Pulmonary fibrosis [Unknown]
  - Restrictive pulmonary disease [Unknown]
  - Pulmonary function test abnormal [Unknown]
  - Cough [Unknown]
  - Type 2 diabetes mellitus [Unknown]
  - Migraine [Unknown]
  - Pneumonia [Unknown]
  - Bronchitis chronic [Unknown]
  - Anxiety [Unknown]

NARRATIVE: CASE EVENT DATE: 2013
